FAERS Safety Report 24148344 (Version 2)
Quarter: 2024Q3

REPORT INFORMATION
  Report Type: Spontaneous
  Country: US (occurrence: US)
  Receive Date: 20240729
  Receipt Date: 20240802
  Transmission Date: 20241017
  Serious: No
  Sender: PFIZER
  Company Number: US-PFIZER INC-202400223013

PATIENT
  Age: 57 Year
  Sex: Female

DRUGS (1)
  1. DEPO-ESTRADIOL [Suspect]
     Active Substance: ESTRADIOL CYPIONATE
     Dosage: UNK

REACTIONS (3)
  - Product availability issue [Unknown]
  - Therapy interrupted [Unknown]
  - Withdrawal syndrome [Unknown]
